FAERS Safety Report 6163610-X (Version None)
Quarter: 2009Q2

REPORT INFORMATION
  Report Type: 
  Country: None (occurrence: None)
  Receive Date: 20090422
  Receipt Date: 20090408
  Transmission Date: 20091009
  Serious: Yes (Other)
  Sender: FDA-Public Use
  Company Number: US-ROCHE-625781

PATIENT
  Age: 42 Year
  Sex: Female

DRUGS (4)
  1. XELODA [Suspect]
     Indication: BREAST CANCER RECURRENT
     Dosage: UNK
     Route: 065
  2. XELODA [Suspect]
     Route: 065
  3. BEVACIZUMAB [Suspect]
     Indication: BREAST CANCER RECURRENT
     Dosage: UNK MG/KG, SINGLE
     Route: 065
     Dates: start: 20090326
  4. BEVACIZUMAB [Suspect]
     Route: 065

REACTIONS (4)
  - CARDIOMYOPATHY [None]
  - EJECTION FRACTION DECREASED [None]
  - PULMONARY OEDEMA [None]
  - RESPIRATORY FAILURE [None]
